FAERS Safety Report 7379738-2 (Version None)
Quarter: 2011Q1

REPORT INFORMATION
  Report Type: 
  Country: None (occurrence: None)
  Receive Date: 20110329
  Receipt Date: 20110323
  Transmission Date: 20110831
  Serious: No
  Sender: FDA-Public Use
  Company Number: US-PFIZER INC-2011065772

PATIENT
  Sex: Male
  Weight: 92.063 kg

DRUGS (4)
  1. CUMADIN [Concomitant]
     Indication: ANTICOAGULANT THERAPY
     Dosage: 4 MG, UNK
     Dates: start: 20110301
  2. DILTIAZEM [Concomitant]
     Dosage: 120 MG, 1X/DAY
  3. TIKOSYN [Suspect]
     Indication: ARRHYTHMIA
     Dosage: 500 UG, 2X/DAY
     Route: 048
     Dates: start: 20110308
  4. ASPIRIN [Concomitant]
     Dosage: 325 MG, 1X/DAY

REACTIONS (3)
  - FEAR [None]
  - DIZZINESS [None]
  - HEADACHE [None]
